FAERS Safety Report 8295096-3 (Version None)
Quarter: 2012Q2

REPORT INFORMATION
  Report Type: 
  Country: None (occurrence: None)
  Receive Date: 20120418
  Receipt Date: 20120404
  Transmission Date: 20120825
  Serious: Yes (Hospitalization, Disabling, Other)
  Sender: FDA-Public Use
  Company Number: -VALEANT-2012VX001147

PATIENT
  Age: 75 Year
  Sex: Male
  Weight: 79 kg

DRUGS (6)
  1. MADOPAR [Concomitant]
     Indication: PARKINSON'S DISEASE
     Route: 065
  2. CLARIUM [Concomitant]
     Indication: PARKINSON'S DISEASE
     Route: 065
  3. TASMAR [Suspect]
     Indication: PARKINSON'S DISEASE
     Route: 065
     Dates: start: 20101007, end: 20111201
  4. L-DOPA-RETARD [Suspect]
     Route: 065
  5. L-DOPA [Concomitant]
     Indication: PARKINSON'S DISEASE
     Route: 065
  6. AZILECT [Concomitant]
     Indication: PARKINSON'S DISEASE
     Route: 065

REACTIONS (5)
  - CARDIAC FAILURE [None]
  - ATRIAL FIBRILLATION [None]
  - PLEURAL EFFUSION [None]
  - GENERALISED OEDEMA [None]
  - CONGESTIVE CARDIOMYOPATHY [None]
